FAERS Safety Report 5031213-6 (Version None)
Quarter: 2006Q2

REPORT INFORMATION
  Report Type: 
  Country: None (occurrence: None)
  Receive Date: 20060621
  Receipt Date: 20060330
  Transmission Date: 20061013
  Serious: No
  Sender: FDA-Public Use
  Company Number: US-GLAXOSMITHKLINE-A0599762A

PATIENT
  Age: 47 Year
  Sex: Female

DRUGS (2)
  1. AVANDARYL [Suspect]
     Dosage: 1TAB PER DAY
     Route: 048
     Dates: start: 20060320
  2. DIOVAN [Concomitant]

REACTIONS (2)
  - READING DISORDER [None]
  - VISION BLURRED [None]
